FAERS Safety Report 6923936-6 (Version None)
Quarter: 2010Q3

REPORT INFORMATION
  Report Type: 
  Country: None (occurrence: None)
  Receive Date: 20100813
  Receipt Date: 20100804
  Transmission Date: 20110219
  Serious: Yes (Hospitalization, Other)
  Sender: FDA-Public Use
  Company Number: FR-ELI_LILLY_AND_COMPANY-FR201008000916

PATIENT
  Sex: Female

DRUGS (9)
  1. BYETTA [Suspect]
     Indication: TYPE 1 DIABETES MELLITUS
     Dosage: 20 UG, DAILY (1/D)
     Route: 058
     Dates: start: 20090801, end: 20100616
  2. BIPERIDYS [Concomitant]
  3. ATORVASTATIN CALCIUM [Concomitant]
  4. VALSARTAN AND HYDROCHLOROTHIAZIDE [Concomitant]
  5. ACEBUTOLOL [Concomitant]
  6. KARDEGIC [Concomitant]
  7. AMLODIPINE [Concomitant]
  8. DIAMICRON [Concomitant]
  9. METFORMIN HCL [Concomitant]

REACTIONS (1)
  - PANCREATITIS ACUTE [None]
